FAERS Safety Report 8322069-4 (Version None)
Quarter: 2012Q2

REPORT INFORMATION
  Report Type: 
  Country: None (occurrence: None)
  Receive Date: 20120430
  Receipt Date: 20120420
  Transmission Date: 20120825
  Serious: Yes (Other)
  Sender: FDA-Public Use
  Company Number: FR-ABBOTT-12P-056-0928305-02

PATIENT
  Age: 25 Year
  Sex: Female

DRUGS (5)
  1. ALUMINUM HYDROXIDE AND MAGNESIUM TRISILICATE [Concomitant]
     Indication: CROHN'S DISEASE
  2. HUMIRA [Suspect]
     Indication: CROHN'S DISEASE
     Route: 058
     Dates: start: 20051216, end: 20091126
  3. ACETAMINOPHEN W/ PROPOXYPHENE HCL [Concomitant]
     Indication: CROHN'S DISEASE
  4. ACETAMINOPHEN W/ PROPOXYPHENE HCL [Concomitant]
     Indication: ABDOMINAL PAIN
     Dosage: 400MG/30MG
     Dates: start: 20090101
  5. ALUMINUM HYDROXIDE AND MAGNESIUM TRISILICATE [Concomitant]
     Indication: DIARRHOEA
     Dates: start: 20090303

REACTIONS (2)
  - ANAL INFLAMMATION [None]
  - ANAL STENOSIS [None]
